FAERS Safety Report 8367291-6 (Version None)
Quarter: 2012Q2

REPORT INFORMATION
  Report Type: 
  Country: None (occurrence: None)
  Receive Date: 20120517
  Receipt Date: 20120508
  Transmission Date: 20120825
  Serious: Yes (Hospitalization, Other)
  Sender: FDA-Public Use
  Company Number: GB-BRISTOL-MYERS SQUIBB COMPANY-16576522

PATIENT
  Age: 61 Year
  Sex: Male

DRUGS (3)
  1. REYATAZ [Suspect]
     Indication: HIV INFECTION
     Route: 048
  2. MARAVIROC [Interacting]
     Indication: HIV TROPISM TEST
     Dosage: CELSENTRI FILM COATED TABS
     Route: 048
  3. NORVIR [Interacting]
     Indication: HIV INFECTION
     Dosage: TABS
     Route: 048

REACTIONS (2)
  - DRUG INTERACTION [None]
  - ADVERSE EVENT [None]
